FAERS Safety Report 12864348 (Version 1)
Quarter: 2016Q4

REPORT INFORMATION
  Report Type: Spontaneous
  Country: US (occurrence: US)
  Receive Date: 20161020
  Receipt Date: 20161020
  Transmission Date: 20170207
  Serious: No
  Sender: FDA-Public Use
  Company Number: US-TEVA-691328USA

PATIENT
  Sex: Female
  Weight: 54.48 kg

DRUGS (1)
  1. RISEDRONIC ACID [Suspect]
     Active Substance: RISEDRONIC ACID
     Indication: OSTEOPOROSIS

REACTIONS (4)
  - Somnolence [Unknown]
  - Mobility decreased [Unknown]
  - Weight decreased [Unknown]
  - Drug dose omission [Unknown]
